FAERS Safety Report 20719085 (Version 2)
Quarter: 2022Q2

REPORT INFORMATION
  Report Type: Spontaneous
  Country: CN (occurrence: CN)
  Receive Date: 20220418
  Receipt Date: 20220601
  Transmission Date: 20220721
  Serious: Yes (Other)
  Sender: FDA-Public Use
  Company Number: CN-SA-2022SA132848

PATIENT
  Age: 61 Year
  Sex: Male

DRUGS (9)
  1. OXALIPLATIN [Suspect]
     Active Substance: OXALIPLATIN
     Indication: Adenocarcinoma gastric
     Dosage: UNK,  QCY FOR 3 TIMES
     Dates: start: 20200728
  2. OXALIPLATIN [Suspect]
     Active Substance: OXALIPLATIN
     Dosage: UNK, QCY FOR 3 TIMES
     Dates: start: 20200818
  3. OXALIPLATIN [Suspect]
     Active Substance: OXALIPLATIN
     Dosage: UNK,  QCY FOR 3 TIMES
     Dates: start: 20200916
  4. CAPECITABINE [Suspect]
     Active Substance: CAPECITABINE
     Indication: Adenocarcinoma gastric
     Dosage: UNK, QCY FOR 3 TIMES
     Dates: start: 20200728
  5. CAPECITABINE [Suspect]
     Active Substance: CAPECITABINE
     Dosage: UNK, QCY FOR 3 TIMES
     Dates: start: 20200818
  6. CAPECITABINE [Suspect]
     Active Substance: CAPECITABINE
     Dosage: UNK, QCY FOR 3 TIMES
     Dates: start: 20200916
  7. SINTILIMAB [Concomitant]
     Active Substance: SINTILIMAB
     Indication: Adenocarcinoma gastric
     Dosage: PD-1 MONOCLONAL ANTIBODY FOR 3 TIMES
     Dates: start: 20200728
  8. SINTILIMAB [Concomitant]
     Active Substance: SINTILIMAB
     Dosage: PD-1 MONOCLONAL ANTIBODY FOR 3 TIMES
     Dates: start: 20200818
  9. SINTILIMAB [Concomitant]
     Active Substance: SINTILIMAB
     Dosage: PD-1 MONOCLONAL ANTIBODY FOR 3 TIMES
     Dates: start: 20200916

REACTIONS (3)
  - Myelosuppression [Unknown]
  - Palmar-plantar erythrodysaesthesia syndrome [Unknown]
  - Hepatic function abnormal [Unknown]

NARRATIVE: CASE EVENT DATE: 20200801
